FAERS Safety Report 20569975 (Version 1)
Quarter: 2022Q1

REPORT INFORMATION
  Report Type: Spontaneous
  Country: IT (occurrence: IT)
  Receive Date: 20220309
  Receipt Date: 20220309
  Transmission Date: 20220424
  Serious: Yes (Other)
  Sender: FDA-Public Use
  Company Number: None

PATIENT
  Age: 63 Year
  Sex: Female
  Weight: 102 kg

DRUGS (1)
  1. IMRALDI [Suspect]
     Active Substance: ADALIMUMAB
     Indication: Spondylitis
     Route: 058
     Dates: start: 20190626, end: 20220221

REACTIONS (8)
  - Bone swelling [Recovering/Resolving]
  - Inflammation [Recovering/Resolving]
  - Metatarsalgia [Recovering/Resolving]
  - Muscle rigidity [Recovering/Resolving]
  - Fatigue [Recovering/Resolving]
  - Drug ineffective [Recovering/Resolving]
  - Product substitution issue [Recovering/Resolving]
  - Product use in unapproved indication [Unknown]

NARRATIVE: CASE EVENT DATE: 20220221
